FAERS Safety Report 5724851-6 (Version None)
Quarter: 2008Q2

REPORT INFORMATION
  Report Type: 
  Country: None (occurrence: None)
  Receive Date: 20080501
  Receipt Date: 20080424
  Transmission Date: 20081010
  Serious: Yes (Death, Hospitalization)
  Sender: FDA-Public Use
  Company Number: US-ASTRAZENECA-2008UW04361

PATIENT
  Age: 86 Year
  Sex: Female
  Weight: 74.8 kg

DRUGS (14)
  1. ARIMIDEX [Suspect]
     Indication: BREAST CANCER
     Route: 048
     Dates: start: 20060101
  2. ALTACE [Concomitant]
  3. CHLORTHALIDONE [Concomitant]
  4. FOSAMAX [Concomitant]
  5. LYRICA [Concomitant]
  6. LIPITOR [Concomitant]
  7. POTASSIUM CHLORIDE [Concomitant]
  8. ASPIRIN [Concomitant]
  9. TYLENOL [Concomitant]
  10. SENNA S [Concomitant]
  11. CENTRUM SILVER [Concomitant]
  12. MULTI-VITAMIN [Concomitant]
  13. PROCHLORPERAZINE [Concomitant]
     Dates: start: 20070701
  14. MORPHINE [Concomitant]

REACTIONS (4)
  - DEATH [None]
  - FALL [None]
  - LUNG INJURY [None]
  - RIB FRACTURE [None]
